FAERS Safety Report 6893344-5 (Version None)
Quarter: 2010Q3

REPORT INFORMATION
  Report Type: 
  Country: None (occurrence: None)
  Receive Date: 20100731
  Receipt Date: 20090819
  Transmission Date: 20110219
  Serious: No
  Sender: FDA-Public Use
  Company Number: US-PFIZER INC-2009256954

PATIENT
  Sex: Male
  Weight: 86.2 kg

DRUGS (1)
  1. LIPITOR [Suspect]

REACTIONS (3)
  - DRUG HYPERSENSITIVITY [None]
  - MYALGIA [None]
  - PAIN IN EXTREMITY [None]
